FAERS Safety Report 8350988 (Version 6)
Quarter: 2013Q4

REPORT INFORMATION
  Report Type: Spontaneous
  Country: US (occurrence: US)
  Receive Date: 20120124
  Receipt Date: 20131125
  Transmission Date: 20140711
  Serious: Yes (Other)
  Sender: FDA-Public Use
  Company Number: US-ROCHE-1032812

PATIENT
  Age: 27 Year
  Sex: Female
  Weight: 52.21 kg

DRUGS (3)
  1. ACCUTANE [Suspect]
     Indication: ACNE
     Route: 048
     Dates: start: 19840709, end: 19841210
  2. ACCUTANE [Suspect]
     Route: 048
     Dates: end: 1985
  3. ACCUTANE [Suspect]
     Route: 048
     Dates: start: 1983

REACTIONS (8)
  - Colitis [Unknown]
  - Irritable bowel syndrome [Unknown]
  - Depression [Unknown]
  - Intestinal haemorrhage [Unknown]
  - Intestinal obstruction [Unknown]
  - Large intestine polyp [Unknown]
  - Blood cholesterol decreased [Unknown]
  - Headache [Unknown]
